FAERS Safety Report 7812062-X (Version None)
Quarter: 2011Q4

REPORT INFORMATION
  Report Type: 
  Country: None (occurrence: None)
  Receive Date: 20111011
  Receipt Date: 20110923
  Transmission Date: 20120403
  Serious: Yes (Hospitalization, Other)
  Sender: FDA-Public Use
  Company Number: NSR_00277_2011

PATIENT
  Age: 80 Year
  Sex: Female

DRUGS (2)
  1. VENLAFAXINE HCL [Suspect]
     Indication: DEPRESSIVE SYMPTOM
     Dosage: (225 MG, DF), (150 MG, DF)
  2. VENLAFAXINE HCL [Suspect]
     Indication: DEPRESSIVE SYMPTOM
     Dosage: (225 MG, DF), (150 MG, DF)

REACTIONS (10)
  - OXYGEN SATURATION DECREASED [None]
  - VOMITING [None]
  - PYREXIA [None]
  - PULMONARY EOSINOPHILIA [None]
  - PANCREATITIS ACUTE [None]
  - DYSPNOEA EXERTIONAL [None]
  - RESPIRATORY DISTRESS [None]
  - ACUTE LUNG INJURY [None]
  - COUGH [None]
  - CREPITATIONS [None]
